FAERS Safety Report 24045237 (Version 1)
Quarter: 2024Q3

REPORT INFORMATION
  Report Type: Spontaneous
  Country: US (occurrence: None)
  Receive Date: 20240702
  Receipt Date: 20240702
  Transmission Date: 20241017
  Serious: No
  Sender: Public
  Company Number: None

PATIENT
  Age: 70 Year
  Sex: Male

DRUGS (6)
  1. XDEMVY [Suspect]
     Active Substance: LOTILANER
     Dosage: BID OPHTHALMIC
     Route: 047
  2. AMLODIPINE [Concomitant]
  3. ENALAPRIL [Concomitant]
  4. cosopt sf [Concomitant]
  5. LUMIGAN [Concomitant]
  6. Atrificial tears [Concomitant]

REACTIONS (2)
  - Dry eye [None]
  - Therapy cessation [None]

NARRATIVE: CASE EVENT DATE: 20240630
